FAERS Safety Report 5465229-2 (Version None)
Quarter: 2007Q3

REPORT INFORMATION
  Report Type: 
  Country: None (occurrence: None)
  Receive Date: 20070919
  Receipt Date: 20070919
  Transmission Date: 20080115
  Serious: Yes (Hospitalization)
  Sender: FDA-Public Use
  Company Number: None

PATIENT
  Sex: Male
  Weight: 77.6 kg

DRUGS (2)
  1. CYCLOPHOSPHAMIDE [Suspect]
     Dosage: 4290 MG
     Dates: end: 20030509
  2. CYTARABINE [Suspect]
     Dosage: 2640 MG
     Dates: end: 20000508

REACTIONS (5)
  - ARTHRITIS BACTERIAL [None]
  - BLOOD CULTURE POSITIVE [None]
  - CELLULITIS [None]
  - ENTEROCOCCAL INFECTION [None]
  - MUSCULOSKELETAL PAIN [None]
